FAERS Safety Report 5320337-1 (Version None)
Quarter: 2007Q2

REPORT INFORMATION
  Report Type: 
  Country: None (occurrence: None)
  Receive Date: 20070509
  Receipt Date: 20070427
  Transmission Date: 20071010
  Serious: Yes (Hospitalization, Other)
  Sender: FDA-Public Use
  Company Number: FI-ELI_LILLY_AND_COMPANY-FI200701000659

PATIENT
  Age: 78 Year
  Sex: Male

DRUGS (9)
  1. CYMBALTA [Suspect]
     Indication: DEPRESSION
     Dosage: 60 MG, DAILY (1/D)
     Route: 048
     Dates: start: 20061024, end: 20061201
  2. ABALGIN RETARD [Concomitant]
     Indication: PAIN
     Dosage: 150 MG, 2/D
     Route: 048
  3. BISOPROLOL [Concomitant]
     Dosage: 2.5 MG, DAILY (1/D)
     Route: 065
  4. THEOFOL [Concomitant]
     Dosage: 20 ML, ONCE OT WICE A DAY
     Route: 065
  5. GEFINA [Concomitant]
     Dosage: UNK, UNKNOWN
     Route: 065
  6. SIMVASTATIN [Concomitant]
     Dosage: UNK, UNKNOWN
     Route: 065
  7. NITROSID [Concomitant]
     Dosage: UNK, UNKNOWN
     Route: 065
  8. PRIMASPAN [Concomitant]
     Dosage: UNK, UNKNOWN
     Route: 065
  9. LITALGIN                           /00320201/ [Concomitant]
     Dosage: UNK, AS NEEDED
     Route: 065

REACTIONS (4)
  - DIABETES MELLITUS [None]
  - DIARRHOEA [None]
  - HALLUCINATION [None]
  - VITAMIN B12 DECREASED [None]
